FAERS Safety Report 11367434 (Version 1)
Quarter: 2015Q3

REPORT INFORMATION
  Report Type: Spontaneous
  Country: US (occurrence: US)
  Receive Date: 20150811
  Receipt Date: 20150811
  Transmission Date: 20151125
  Serious: Yes (Other)
  Sender: FDA-Public Use
  Company Number: US-ELI_LILLY_AND_COMPANY-US201204000227

PATIENT
  Age: 60 Year
  Sex: Male

DRUGS (2)
  1. AXIRON [Suspect]
     Active Substance: TESTOSTERONE
     Dosage: 60 MG, UNK
     Dates: start: 2011
  2. CIALIS [Concomitant]
     Active Substance: TADALAFIL
     Indication: ERECTILE DYSFUNCTION
     Dosage: 5 MG, UNK
     Dates: start: 2011

REACTIONS (1)
  - Prostate cancer [Unknown]
